FAERS Safety Report 6161132-3 (Version None)
Quarter: 2009Q2

REPORT INFORMATION
  Report Type: 
  Country: None (occurrence: None)
  Receive Date: 20090417
  Receipt Date: 20090407
  Transmission Date: 20091009
  Serious: Yes (Hospitalization)
  Sender: FDA-Public Use
  Company Number: MPSI-1000207

PATIENT
  Age: 17 Year
  Sex: Female

DRUGS (1)
  1. ALDURAZYME [Suspect]
     Indication: MUCOPOLYSACCHARIDOSIS
     Dosage: 34.8 MG, 1X/W, INTRAVENOUS
     Route: 042
     Dates: start: 20030611

REACTIONS (1)
  - CERVICAL CORD COMPRESSION [None]
